FAERS Safety Report 14841026 (Version 1)
Quarter: 2018Q2

REPORT INFORMATION
  Report Type: Spontaneous
  Country: US (occurrence: US)
  Receive Date: 20180503
  Receipt Date: 20180503
  Transmission Date: 20180711
  Serious: No
  Sender: FDA-Public Use
  Company Number: US-PFIZER INC-2018178203

PATIENT
  Age: 77 Year
  Sex: Female

DRUGS (8)
  1. DRIXORAL [Suspect]
     Active Substance: DEXBROMPHENIRAMINE MALEATE\PSEUDOEPHEDRINE SULFATE
     Dosage: UNK
  2. CLEOCIN [Suspect]
     Active Substance: CLINDAMYCIN PHOSPHATE
     Dosage: UNK
  3. CODEINE [Suspect]
     Active Substance: CODEINE
     Dosage: UNK
  4. LINOCIN [Suspect]
     Active Substance: LINCOMYCIN HYDROCHLORIDE
     Dosage: UNK
  5. FLOXACIN [Suspect]
     Active Substance: NORFLOXACIN
     Dosage: UNK
  6. CLINDAMYCIN PHOSPHATE. [Suspect]
     Active Substance: CLINDAMYCIN PHOSPHATE
     Dosage: UNK
  7. AVELOX [Suspect]
     Active Substance: MOXIFLOXACIN HYDROCHLORIDE
     Dosage: UNK
  8. QUINAPRIL. [Suspect]
     Active Substance: QUINAPRIL
     Dosage: UNK

REACTIONS (2)
  - Drug hypersensitivity [Unknown]
  - Urticaria [Unknown]
